FAERS Safety Report 25369446 (Version 2)
Quarter: 2025Q2

REPORT INFORMATION
  Report Type: Report from Study
  Country: IN (occurrence: IN)
  Receive Date: 20250528
  Receipt Date: 20250625
  Transmission Date: 20250717
  Serious: Yes (Hospitalization)
  Sender: MERCK SHARP & DOHME LLC
  Company Number: IN-AstrazenecaRSG-3511-D926QC00001(Prod)000008

PATIENT
  Age: 40 Year
  Sex: Female
  Weight: 55 kg

DRUGS (14)
  1. PEMBROLIZUMAB [Suspect]
     Active Substance: PEMBROLIZUMAB
     Indication: Triple negative breast cancer
     Route: 042
     Dates: start: 20240510, end: 20250213
  2. GRANISETRON HYDROCHLORIDE [Concomitant]
     Active Substance: GRANISETRON HYDROCHLORIDE
     Indication: Prophylaxis of nausea and vomiting
     Dosage: 1 MG, BID
     Route: 048
     Dates: start: 20240612, end: 20240615
  3. VITAMINS NOS [Concomitant]
     Active Substance: VITAMINS
     Indication: Prophylaxis
     Route: 048
     Dates: start: 20240511
  4. METOCLOPRAMIDE HYDROCHLORIDE [Concomitant]
     Active Substance: METOCLOPRAMIDE HYDROCHLORIDE
     Indication: Prophylaxis of nausea and vomiting
     Dosage: 1 MG, BID
     Route: 048
     Dates: start: 20240604, end: 20240604
  5. FILGRASTIM [Concomitant]
     Active Substance: FILGRASTIM
     Indication: Neutropenia
     Dosage: 300 UG, SINGLE
     Route: 058
     Dates: start: 20240626, end: 20240628
  6. EPIRUBICIN [Suspect]
     Active Substance: EPIRUBICIN
     Indication: Triple negative breast cancer
     Route: 042
     Dates: start: 20240821, end: 20241007
  7. BETADINE [Concomitant]
     Active Substance: POVIDONE-IODINE
     Indication: Mucosal inflammation
     Route: 050
  8. PACLITAXEL [Suspect]
     Active Substance: PACLITAXEL
     Indication: Triple negative breast cancer
     Route: 042
     Dates: start: 20240510, end: 20240717
  9. DOMPERIDONE [Concomitant]
     Active Substance: DOMPERIDONE
     Indication: Prophylaxis of nausea and vomiting
     Dosage: 20 MG, TID
     Route: 065
     Dates: start: 20240626, end: 20240628
  10. CARBOPLATIN [Suspect]
     Active Substance: CARBOPLATIN
     Indication: Triple negative breast cancer
     Route: 042
     Dates: start: 20240510, end: 20240717
  11. PALONOSETRON [Concomitant]
     Active Substance: PALONOSETRON
     Indication: Prophylaxis of nausea and vomiting
     Dosage: 0.50 MILLIGRAM, SINGLE
     Route: 048
     Dates: start: 20240604, end: 20240604
  12. CYCLOPHOSPHAMIDE [Suspect]
     Active Substance: CYCLOPHOSPHAMIDE
     Indication: Triple negative breast cancer
     Route: 042
     Dates: start: 20240821, end: 20241007
  13. CREMAFFIN [Concomitant]
     Indication: Constipation
     Route: 048
  14. RANITIDINE [Concomitant]
     Active Substance: RANITIDINE
     Indication: Hypersensitivity
     Dosage: 12 MG, SINGLE
     Route: 042
     Dates: start: 20240611, end: 20240611

REACTIONS (1)
  - Febrile neutropenia [Recovered/Resolved]

NARRATIVE: CASE EVENT DATE: 20241014
